FAERS Safety Report 15860540 (Version 3)
Quarter: 2019Q1

REPORT INFORMATION
  Report Type: Spontaneous
  Country: FR (occurrence: FR)
  Receive Date: 20190123
  Receipt Date: 20190305
  Transmission Date: 20190417
  Serious: Yes (Other)
  Sender: FDA-Public Use
  Company Number: FR-CELLTRION INC.-2019FR017928

PATIENT

DRUGS (5)
  1. RITUXIMAB (UNKNOWN) [Suspect]
     Active Substance: RITUXIMAB
     Dosage: UNK
     Route: 065
  2. RITUXIMAB (UNKNOWN) [Suspect]
     Active Substance: RITUXIMAB
     Indication: NEPHROPATHY TOXIC
     Dosage: UNK
  3. TENOFOVIR DISOPROXIL [Suspect]
     Active Substance: TENOFOVIR DISOPROXIL
     Indication: HIV INFECTION
     Dosage: AS A PART OF HIGHLY ACTIVE ANTIRETROVIRAL THERAPY (HAART) REGIMEN
     Route: 065
  4. NEVIRAPINE. [Concomitant]
     Active Substance: NEVIRAPINE
     Indication: HIV INFECTION
     Dosage: AS A PART OF HIGHLY ACTIVE ANTIRETROVIRAL THERAPY (HAART) REGIMEN
     Route: 065
  5. RALTEGRAVIR. [Concomitant]
     Active Substance: RALTEGRAVIR
     Indication: HIV INFECTION
     Dosage: AS A PART OF HIGHLY ACTIVE ANTIRETROVIRAL THERAPY (HAART) REGIMEN
     Route: 065

REACTIONS (5)
  - Clostridium difficile colitis [Unknown]
  - Nephropathy toxic [Recovered/Resolved]
  - Product use in unapproved indication [Unknown]
  - Acute kidney injury [Unknown]
  - Pyelonephritis [Unknown]
